FAERS Safety Report 19250928 (Version 5)
Quarter: 2024Q4

REPORT INFORMATION
  Report Type: Report from Study
  Country: US (occurrence: US)
  Receive Date: 20210512
  Receipt Date: 20241004
  Transmission Date: 20250114
  Serious: Yes (Hospitalization, Other)
  Sender: TAKEDA
  Company Number: US-TAKEDA-2021TUS029837

PATIENT
  Sex: Female

DRUGS (3)
  1. PARATHYROID HORMONE [Suspect]
     Active Substance: PARATHYROID HORMONE
     Indication: Hypoparathyroidism
     Dosage: 50 MICROGRAM, BID
     Route: 058
     Dates: start: 20150528
  2. PARATHYROID HORMONE [Suspect]
     Active Substance: PARATHYROID HORMONE
     Indication: Hypoparathyroidism
     Dosage: 50 MICROGRAM, BID
     Route: 058
     Dates: start: 20150528
  3. PARATHYROID HORMONE [Suspect]
     Active Substance: PARATHYROID HORMONE
     Indication: Hypoparathyroidism
     Dosage: 50 MICROGRAM, BID
     Route: 058
     Dates: start: 20150528

REACTIONS (26)
  - Cardiac failure congestive [Not Recovered/Not Resolved]
  - Pericardial effusion [Not Recovered/Not Resolved]
  - Nephrolithiasis [Recovering/Resolving]
  - Seizure [Unknown]
  - Osteomyelitis [Unknown]
  - Acute respiratory failure [Unknown]
  - Spinal cord compression [Unknown]
  - Neoplasm malignant [Unknown]
  - Chronic respiratory failure [Unknown]
  - Renal failure [Unknown]
  - Blood calcium decreased [Recovering/Resolving]
  - Hypocalcaemia [None]
  - Therapeutic product effect variable [Recovering/Resolving]
  - Brain fog [Unknown]
  - Liver disorder [Unknown]
  - Spleen disorder [Unknown]
  - Bone marrow disorder [Unknown]
  - Loss of personal independence in daily activities [Unknown]
  - Asthma [Unknown]
  - Procedural complication [Unknown]
  - Arthritis [Unknown]
  - Visual impairment [Unknown]
  - Mobility decreased [Unknown]
  - Multiple use of single-use product [Unknown]
  - Tetany [Unknown]
  - Dyspnoea [Unknown]
